FAERS Safety Report 8034033-3 (Version None)
Quarter: 2011Q4

REPORT INFORMATION
  Report Type: 
  Country: None (occurrence: None)
  Receive Date: 20111202
  Receipt Date: 20100129
  Transmission Date: 20120403
  Serious: Yes (Hospitalization, Other)
  Sender: FDA-Public Use
  Company Number: 2010SP006324

PATIENT
  Age: 25 Year
  Sex: Female
  Weight: 113.3993 kg

DRUGS (3)
  1. ALBUTEROL [Concomitant]
  2. MARIJUANA [Concomitant]
  3. NUVARING [Suspect]
     Indication: CONTRACEPTION
     Dosage: ; VAG
     Route: 067
     Dates: start: 20060501, end: 20060901

REACTIONS (2)
  - HYPERTENSION [None]
  - PULMONARY EMBOLISM [None]
